FAERS Safety Report 19703121 (Version 2)
Quarter: 2021Q4

REPORT INFORMATION
  Report Type: Spontaneous
  Country: JP (occurrence: JP)
  Receive Date: 20210816
  Receipt Date: 20211008
  Transmission Date: 20220303
  Serious: Yes (Hospitalization)
  Sender: FDA-Public Use
  Company Number: NVSJ2021JP011999

PATIENT

DRUGS (1)
  1. COSENTYX [Suspect]
     Active Substance: SECUKINUMAB
     Indication: Psoriasis
     Dosage: UNK
     Route: 058

REACTIONS (4)
  - Cellulitis [Unknown]
  - Peripheral swelling [Unknown]
  - Pain of skin [Unknown]
  - Pyrexia [Unknown]

NARRATIVE: CASE EVENT DATE: 20210808
